FAERS Safety Report 9432334 (Version 3)
Quarter: 2013Q4

REPORT INFORMATION
  Report Type: Spontaneous
  Country: FR (occurrence: FR)
  Receive Date: 20130731
  Receipt Date: 20131202
  Transmission Date: 20140711
  Serious: Yes (Hospitalization)
  Sender: FDA-Public Use
  Company Number: FR-PFIZER INC-2013221675

PATIENT
  Age: 87 Year
  Sex: Male

DRUGS (6)
  1. TRIATEC [Suspect]
     Dosage: 1.25 MG, 1X/DAY
     Route: 048
     Dates: start: 201303, end: 201307
  2. HEMIGOXINE NATIVELLE [Suspect]
     Dosage: 0.125 MG, 1X/DAY
     Route: 048
     Dates: start: 201303, end: 201307
  3. FUROSEMIDE [Concomitant]
     Dosage: UNK
  4. BISOPROLOL [Concomitant]
     Dosage: UNK
  5. COUMADINE [Concomitant]
     Dosage: UNK
  6. CALCIDOSE [Concomitant]
     Dosage: UNK

REACTIONS (1)
  - Hypersensitivity vasculitis [Not Recovered/Not Resolved]
